FAERS Safety Report 12475568 (Version 2)
Quarter: 2016Q2

REPORT INFORMATION
  Report Type: Spontaneous
  Country: JP (occurrence: JP)
  Receive Date: 20160617
  Receipt Date: 20160624
  Transmission Date: 20160815
  Serious: Yes (Other)
  Sender: FDA-Public Use
  Company Number: JP-ASTRAZENECA-2016SE65389

PATIENT
  Age: 82 Year
  Sex: Male

DRUGS (6)
  1. TENELIA [Suspect]
     Active Substance: TENELIGLIPTIN
     Route: 048
     Dates: start: 20160310
  2. AMARYL [Suspect]
     Active Substance: GLIMEPIRIDE
     Route: 048
  3. NEXIUM [Suspect]
     Active Substance: ESOMEPRAZOLE MAGNESIUM
     Route: 048
     Dates: start: 20160512
  4. ADALAT CC [Suspect]
     Active Substance: NIFEDIPINE
     Dosage: 20 MG EVERY DAY, NON-AZ PRODUCT
     Route: 048
  5. ARTIST [Suspect]
     Active Substance: CARVEDILOL
     Route: 048
     Dates: start: 20140820
  6. AVAPRO [Suspect]
     Active Substance: IRBESARTAN
     Route: 048

REACTIONS (1)
  - Gastric cancer [Unknown]
